FAERS Safety Report 7980303-4 (Version None)
Quarter: 2011Q4

REPORT INFORMATION
  Report Type: 
  Country: None (occurrence: None)
  Receive Date: 20111214
  Receipt Date: 20111121
  Transmission Date: 20120403
  Serious: Yes (Other)
  Sender: FDA-Public Use
  Company Number: PHHY2011BR098674

PATIENT
  Sex: Male
  Weight: 16 kg

DRUGS (2)
  1. AMOXICILLIN AND CLAVULANATE POTASSIUM [Suspect]
     Indication: BRONCHITIS
     Dosage: 6 ML, TID
     Route: 048
     Dates: start: 20111031
  2. ALBUTEROL SULFATE AUTOHALER [Concomitant]

REACTIONS (2)
  - VARICELLA [None]
  - PRURITUS GENERALISED [None]
